FAERS Safety Report 4577559-7 (Version None)
Quarter: 2005Q1

REPORT INFORMATION
  Report Type: 
  Country: None (occurrence: None)
  Receive Date: 20050127
  Receipt Date: 20040922
  Transmission Date: 20050727
  Serious: No
  Sender: FDA-Public Use
  Company Number: US_0410106602

PATIENT
  Age: 53 Year
  Sex: Female

DRUGS (1)
  1. STRATTERA [Suspect]
     Indication: ATTENTION DEFICIT/HYPERACTIVITY DISORDER
     Dosage: 160 MG DAY

REACTIONS (4)
  - DRUG INEFFECTIVE [None]
  - HOT FLUSH [None]
  - MOOD SWINGS [None]
  - PRESCRIBED OVERDOSE [None]
